FAERS Safety Report 6004086-2 (Version None)
Quarter: 2008Q4

REPORT INFORMATION
  Report Type: 
  Country: None (occurrence: None)
  Receive Date: 20081216
  Receipt Date: 20081205
  Transmission Date: 20090506
  Serious: Yes (Other)
  Sender: FDA-Public Use
  Company Number: LB-JNJFOC-20081201764

PATIENT
  Age: 68 Year
  Sex: Female
  Weight: 77 kg

DRUGS (4)
  1. DOXORUBICIN HCL [Suspect]
     Dosage: 12TH CYCLE
     Route: 042
  2. DOXORUBICIN HCL [Suspect]
     Route: 042
  3. DOXORUBICIN HCL [Suspect]
     Dosage: 7TH CYCLE. 20MG/M2
     Route: 042
  4. DOXORUBICIN HCL [Suspect]
     Indication: OVARIAN CANCER RECURRENT
     Dosage: 6 CYCLES
     Route: 042

REACTIONS (2)
  - SKIN NODULE [None]
  - SKIN ULCER [None]
